FAERS Safety Report 6722812-1 (Version None)
Quarter: 2010Q2

REPORT INFORMATION
  Report Type: 
  Country: None (occurrence: None)
  Receive Date: 20100512
  Receipt Date: 20100512
  Transmission Date: 20101027
  Serious: Yes (Hospitalization, Other)
  Sender: FDA-Public Use
  Company Number: None

PATIENT
  Age: 27 Year
  Sex: Female
  Weight: 88.4514 kg

DRUGS (1)
  1. YAZ [Suspect]

REACTIONS (2)
  - CEREBRAL THROMBOSIS [None]
  - THREAT OF REDUNDANCY [None]
